FAERS Safety Report 9246127 (Version 2)
Quarter: 2013Q2

REPORT INFORMATION
  Report Type: Report from Study
  Country: HU (occurrence: HU)
  Receive Date: 20130422
  Receipt Date: 20130611
  Transmission Date: 20140414
  Serious: Yes (Other)
  Sender: FDA-Public Use
  Company Number: HU-ROCHE-1215502

PATIENT
  Age: 47 Year
  Sex: Female

DRUGS (2)
  1. PEG-INTERFERON ALFA 2A [Suspect]
     Indication: HEPATITIS C
     Route: 058
     Dates: start: 20100507, end: 20110401
  2. RIBAVIRIN [Suspect]
     Indication: HEPATITIS C
     Dosage: 400+600 MG
     Route: 048
     Dates: start: 20100507, end: 20110401

REACTIONS (1)
  - Genital haemorrhage [Recovered/Resolved]
